FAERS Safety Report 5425123-X (Version None)
Quarter: 2007Q3

REPORT INFORMATION
  Report Type: 
  Country: None (occurrence: None)
  Receive Date: 20070824
  Receipt Date: 20070817
  Transmission Date: 20080115
  Serious: Yes (Other)
  Sender: FDA-Public Use
  Company Number: US-JNJFOC-20051102788

PATIENT
  Sex: Female
  Weight: 84.82 kg

DRUGS (8)
  1. RISPERDAL [Suspect]
     Dates: end: 20040601
  2. RISPERDAL [Suspect]
     Indication: AFFECTIVE DISORDER
     Dates: end: 20040601
  3. ZYPREXA [Suspect]
     Indication: AFFECTIVE DISORDER
     Dates: start: 20020301, end: 20040601
  4. SEROQUEL [Suspect]
     Indication: AFFECTIVE DISORDER
     Dates: start: 20020301, end: 20040601
  5. CONCERTA [Concomitant]
  6. OXCARBAZEPINE [Concomitant]
  7. REMERON [Concomitant]
  8. CLONIDINE [Concomitant]

REACTIONS (2)
  - DIABETES MELLITUS [None]
  - WEIGHT INCREASED [None]
